FAERS Safety Report 8401094-9 (Version None)
Quarter: 2012Q2

REPORT INFORMATION
  Report Type: 
  Country: None (occurrence: None)
  Receive Date: 20120601
  Receipt Date: 20120531
  Transmission Date: 20120825
  Serious: Yes (Other)
  Sender: FDA-Public Use
  Company Number: US-PFIZER INC-2012076127

PATIENT
  Sex: Female
  Weight: 63.5 kg

DRUGS (23)
  1. CITALOPRAM [Concomitant]
     Dosage: 40 MG DAILY
  2. LORAZEPAM [Concomitant]
     Indication: SLEEP DISORDER
     Dosage: 1 MG EVERY 6 HOURS AS NEEDED
  3. CHANTIX [Suspect]
     Dosage: 1 MG TABLET 1/2 TABLET IN THE AM, 1/2 TABLET IN THE P.M
     Route: 048
     Dates: start: 20100406
  4. CHANTIX [Suspect]
     Dosage: UNK
     Route: 048
     Dates: start: 20110201
  5. CHANTIX [Suspect]
     Dosage: UNK
     Dates: end: 20120413
  6. PRAVASTATIN [Concomitant]
     Indication: BLOOD CHOLESTEROL INCREASED
     Dosage: 40 MG, DAILY
  7. PREMARIN [Concomitant]
     Dosage: 0.625 MG, UNK
  8. OXYCODONE AND ACETAMINOPHEN [Concomitant]
     Indication: PAIN
     Dosage: ONE TO TWO TABLETS EVERY 4 HOURS PRN
     Dates: start: 20090128
  9. DIPHENOXYLATE HCL + ATROPINE SULFATE [Concomitant]
     Indication: DIARRHOEA
     Dosage: 2.5 MG Q3 HOURS PRN
  10. CALCIUM CARBONATE [Concomitant]
     Indication: DYSPEPSIA
     Dosage: UNK, AS NEEDED
  11. IBUPROFEN [Concomitant]
     Indication: PAIN
     Dosage: 200 MG, AS NEEDED
  12. BENADRYL [Concomitant]
     Dosage: 25 MG, 1X/DAY AT NIGHT
     Dates: start: 20090413
  13. OXYCODONE [Concomitant]
     Indication: FIBROMYALGIA
     Dosage: 5/325 MG, 4X/DAY
  14. CHANTIX [Suspect]
     Dosage: 1 MG, 2X/DAY
     Route: 048
     Dates: start: 20090413, end: 20090901
  15. LEVOTHYROXINE [Concomitant]
     Indication: HYPOTHYROIDISM
     Dosage: 175 MCG DAILY
     Dates: start: 20071030
  16. ACETYLSALICYLIC ACID [Concomitant]
     Dosage: UNK
     Dates: start: 20090413
  17. ROBITUSSIN A-C /OLD FORM/ [Concomitant]
     Dosage: 1-2 TSP EVERY 6 HOURS, AS NEEDED
  18. LORAZEPAM [Concomitant]
     Indication: ANXIETY
  19. CHANTIX [Suspect]
     Indication: SMOKING CESSATION THERAPY
     Dosage: 1 MG, 2X/DAY
     Route: 048
     Dates: start: 20090128
  20. CITALOPRAM [Concomitant]
     Indication: FIBROMYALGIA
     Dosage: 10 MG, DAILY
     Dates: start: 20100418
  21. SALINE [Concomitant]
     Dosage: 2 TO 4 TIMES DAILY
     Dates: start: 20091111
  22. FLONASE [Concomitant]
     Dosage: 1 TO 2 PUFFS DAILY
     Dates: start: 20091111
  23. PROCHLORPERAZINE [Concomitant]
     Indication: NAUSEA
     Dosage: 10 MG, EVERY SIX HOURS, AS NEEDED

REACTIONS (6)
  - ANXIETY [None]
  - NAUSEA [None]
  - BONE DISORDER [None]
  - PALPITATIONS [None]
  - ARTHRALGIA [None]
  - HEADACHE [None]
